FAERS Safety Report 22004637 (Version 1)
Quarter: 2023Q1

REPORT INFORMATION
  Report Type: Spontaneous
  Country: US (occurrence: None)
  Receive Date: 20230215
  Receipt Date: 20230215
  Transmission Date: 20230418
  Serious: Yes (Hospitalization, Disabling)
  Sender: FDA-Public Use
  Company Number: None

PATIENT
  Age: 74 Year
  Sex: Female

DRUGS (5)
  1. LENVIMA [Suspect]
     Active Substance: LENVATINIB
     Indication: Uterine cancer
     Dosage: 10 MG DAILY ORAL
     Route: 048
     Dates: start: 20200420
  2. KEYTRUDA [Concomitant]
     Active Substance: PEMBROLIZUMAB
  3. VITAMIN B12 [Concomitant]
     Active Substance: CYANOCOBALAMIN
  4. CENTRUM SILV ADULT +50 [Concomitant]
  5. SLOW FE CR TABLETS [Concomitant]

REACTIONS (1)
  - Blood glucose abnormal [None]
